FAERS Safety Report 19655182 (Version 1)
Quarter: 2021Q3

REPORT INFORMATION
  Report Type: Spontaneous
  Country: CA (occurrence: CA)
  Receive Date: 20210803
  Receipt Date: 20210803
  Transmission Date: 20211014
  Serious: Yes (Death, Other)
  Sender: FDA-Public Use
  Company Number: CA-SYNEX-T202103352

PATIENT
  Age: 50 Year
  Sex: Male

DRUGS (1)
  1. INOMAX [Suspect]
     Active Substance: NITRIC OXIDE
     Indication: COVID-19
     Dosage: 20 PPM (INHALATION)
     Route: 055
     Dates: start: 20210627, end: 20210706

REACTIONS (5)
  - Respiratory failure [Fatal]
  - Product use in unapproved indication [Unknown]
  - Device failure [Unknown]
  - Oxygen saturation decreased [Recovered/Resolved]
  - Product use issue [Unknown]

NARRATIVE: CASE EVENT DATE: 20210627
